FAERS Safety Report 9751752 (Version 2)
Quarter: 2014Q2

REPORT INFORMATION
  Report Type: Not Available
  Country: GB (occurrence: GB)
  Receive Date: 20131213
  Receipt Date: 20140429
  Transmission Date: 20141212
  Serious: Yes (Hospitalization)
  Sender: FDA-Public Use
  Company Number: GB-BEH-2013039369

PATIENT
  Age: 60 Year
  Sex: Male
  Weight: 82.4 kg

DRUGS (12)
  1. IMMUNOGLOBULIN HUMAN NORMAL [Suspect]
     Indication: CHRONIC INFLAMMATORY DEMYELINATING POLYRADICULONEUROPATHY
     Route: 042
     Dates: start: 20131007
  2. ASPIRIN [Concomitant]
  3. BISOPROLOL [Concomitant]
  4. FOLIC ACID [Concomitant]
  5. IRBESARTAN [Concomitant]
  6. RANITIDINE [Concomitant]
  7. THIAMINE [Concomitant]
  8. VITAMIN B SUBSTANCES [Concomitant]
  9. VITAMIN B COMPLEX STRONG [Concomitant]
  10. ADCAL-D3 [Concomitant]
  11. CALCIUM CARBONATE [Concomitant]
  12. COLECALCIFEROL [Concomitant]

REACTIONS (2)
  - Eczema [Recovering/Resolving]
  - Dermatitis exfoliative [Recovering/Resolving]
